FAERS Safety Report 5533123-4 (Version None)
Quarter: 2007Q4

REPORT INFORMATION
  Report Type: 
  Country: None (occurrence: None)
  Receive Date: 20071204
  Receipt Date: 20071127
  Transmission Date: 20080405
  Serious: Yes (Disabling, Other)
  Sender: FDA-Public Use
  Company Number: BR-AVENTIS-200720980GDDC

PATIENT
  Age: 18 Year
  Sex: Female
  Weight: 57 kg

DRUGS (3)
  1. LANTUS [Suspect]
     Route: 058
     Dates: start: 20070801, end: 20071101
  2. OPTIPEN (INSULIN PUMP) [Suspect]
     Route: 058
     Dates: start: 20071101, end: 20071101
  3. NOVORAPID [Concomitant]
     Route: 058
     Dates: start: 20050101

REACTIONS (5)
  - DRY MOUTH [None]
  - HYPERGLYCAEMIA [None]
  - LAZINESS [None]
  - PHARMACEUTICAL PRODUCT COMPLAINT [None]
  - VOMITING [None]
